FAERS Safety Report 12750438 (Version 1)
Quarter: 2016Q3

REPORT INFORMATION
  Report Type: Spontaneous
  Country: US (occurrence: US)
  Receive Date: 20160916
  Receipt Date: 20160916
  Transmission Date: 20161109
  Serious: Yes (Other)
  Sender: FDA-Public Use
  Company Number: US-BRISTOL-MYERS SQUIBB COMPANY-BMS-2016-075101

PATIENT
  Sex: Female

DRUGS (2)
  1. ORENCIA [Suspect]
     Active Substance: ABATACEPT
     Indication: RHEUMATOID ARTHRITIS
     Route: 058
  2. METHOTREXATE. [Suspect]
     Active Substance: METHOTREXATE
     Indication: PRODUCT USED FOR UNKNOWN INDICATION
     Route: 065

REACTIONS (9)
  - Wrong technique in product usage process [Unknown]
  - Urinary tract infection [Recovering/Resolving]
  - Visual impairment [Unknown]
  - Injection site swelling [Unknown]
  - Feeling abnormal [Unknown]
  - Injection site pain [Unknown]
  - Spinal disorder [Unknown]
  - Herpes zoster [Unknown]
  - Contusion [Unknown]
